FAERS Safety Report 19273324 (Version 1)
Quarter: 2021Q2

REPORT INFORMATION
  Report Type: Report from Study
  Country: AU (occurrence: AU)
  Receive Date: 20210519
  Receipt Date: 20210519
  Transmission Date: 20210717
  Serious: Yes (Other)
  Sender: FDA-Public Use
  Company Number: AU-PFIZER INC-2021530795

PATIENT
  Age: 38 Year
  Sex: Female

DRUGS (13)
  1. VALPROATE [Interacting]
     Active Substance: VALPROIC ACID
     Dosage: UNK
  2. MORPHINE SULFATE. [Interacting]
     Active Substance: MORPHINE SULFATE
     Dosage: 730 MG, 1X/DAY
     Route: 048
  3. CARBAMAZEPINE. [Interacting]
     Active Substance: CARBAMAZEPINE
     Dosage: UNK
  4. INDOMETHACIN [INDOMETACIN] [Interacting]
     Active Substance: INDOMETHACIN
     Dosage: UNK
  5. CODEINE [Interacting]
     Active Substance: CODEINE
     Dosage: UNK
  6. MORPHINE SULFATE. [Interacting]
     Active Substance: MORPHINE SULFATE
     Dosage: 210 MG, 1X/DAY; PUMP
  7. METOCLOPRAMIDE HCL [Interacting]
     Active Substance: METOCLOPRAMIDE HYDROCHLORIDE
     Dosage: UNK
  8. PIROXICAM. [Suspect]
     Active Substance: PIROXICAM
     Dosage: UNK
  9. PARACETAMOL [Interacting]
     Active Substance: ACETAMINOPHEN
     Dosage: UNK
  10. PHENYTOIN. [Interacting]
     Active Substance: PHENYTOIN
     Dosage: UNK
  11. OXYCODONE [Interacting]
     Active Substance: OXYCODONE
     Dosage: UNK
  12. MORPHINE SULFATE. [Suspect]
     Active Substance: MORPHINE SULFATE
     Indication: ANALGESIC THERAPY
     Dosage: 500 MG, 1X/DAY
     Route: 048
  13. PROCHLORPERAZINE. [Interacting]
     Active Substance: PROCHLORPERAZINE
     Dosage: UNK

REACTIONS (2)
  - Drug interaction [Unknown]
  - Myoclonus [Unknown]
